FAERS Safety Report 25009970 (Version 1)
Quarter: 2025Q1

REPORT INFORMATION
  Report Type: Spontaneous
  Country: US (occurrence: None)
  Receive Date: 20250225
  Receipt Date: 20250225
  Transmission Date: 20250408
  Serious: Yes (Other)
  Sender: FDA-CTU
  Company Number: None

PATIENT
  Age: 66 Year
  Sex: Male
  Weight: 63 kg

DRUGS (2)
  1. CEFTRIAXONE [Suspect]
     Active Substance: CEFTRIAXONE
     Indication: Sepsis
     Dosage: FREQUENCY : DAILY;?
     Route: 040
     Dates: start: 20250217, end: 20250217
  2. CEFTRIAXONE [Suspect]
     Active Substance: CEFTRIAXONE
     Indication: Pneumonia

REACTIONS (4)
  - Unresponsive to stimuli [None]
  - Presyncope [None]
  - Heart rate decreased [None]
  - Pulse absent [None]

NARRATIVE: CASE EVENT DATE: 20250217
